FAERS Safety Report 4926760-9 (Version None)
Quarter: 2006Q1

REPORT INFORMATION
  Report Type: 
  Country: None (occurrence: None)
  Receive Date: 20060228
  Receipt Date: 20050610
  Transmission Date: 20060701
  Serious: No
  Sender: FDA-Public Use
  Company Number: US-GLAXOSMITHKLINE-A0562112A

PATIENT
  Age: 47 Year
  Sex: Female

DRUGS (6)
  1. LAMICTAL [Suspect]
     Indication: DEPRESSION
     Dosage: 25MG PER DAY
     Route: 048
     Dates: start: 20050602
  2. WELLBUTRIN [Concomitant]
  3. PLATINOL [Concomitant]
     Route: 065
  4. OXYCONTIN [Concomitant]
  5. NEURONTIN [Concomitant]
  6. SINGULAIR [Concomitant]

REACTIONS (5)
  - BONE PAIN [None]
  - BREAST SWELLING [None]
  - PAIN [None]
  - PYREXIA [None]
  - VISION BLURRED [None]
